FAERS Safety Report 15855328 (Version 1)
Quarter: 2019Q1

REPORT INFORMATION
  Report Type: Report from Study
  Country: US (occurrence: US)
  Receive Date: 20190122
  Receipt Date: 20190122
  Transmission Date: 20190417
  Serious: Yes (Hospitalization)
  Sender: FDA-Public Use
  Company Number: US-GILEAD-2019-0386146

PATIENT
  Age: 61 Year
  Sex: Female

DRUGS (13)
  1. AMBRISENTAN [Suspect]
     Active Substance: AMBRISENTAN
     Indication: PULMONARY ARTERIAL HYPERTENSION
     Dosage: 10 MG, QD
     Route: 065
     Dates: start: 20180511
  2. METOPROLOL. [Concomitant]
     Active Substance: METOPROLOL
  3. DULOXETINE. [Concomitant]
     Active Substance: DULOXETINE
  4. LEVOFLOXACIN. [Concomitant]
     Active Substance: LEVOFLOXACIN
  5. ELIQUIS [Concomitant]
     Active Substance: APIXABAN
  6. MORPHINE [Concomitant]
     Active Substance: MORPHINE
  7. CLONAZEPAM. [Concomitant]
     Active Substance: CLONAZEPAM
  8. LISINOPRIL. [Concomitant]
     Active Substance: LISINOPRIL
  9. POTASSIUM [Concomitant]
     Active Substance: POTASSIUM
  10. GABAPENTIN. [Concomitant]
     Active Substance: GABAPENTIN
  11. LEVOTHYROXINE. [Concomitant]
     Active Substance: LEVOTHYROXINE
  12. NEXIUM I.V. [Concomitant]
     Active Substance: ESOMEPRAZOLE SODIUM
  13. RANITIDINE. [Concomitant]
     Active Substance: RANITIDINE

REACTIONS (1)
  - Pain [Not Recovered/Not Resolved]
